FAERS Safety Report 5016389-9 (Version None)
Quarter: 2006Q2

REPORT INFORMATION
  Report Type: 
  Country: None (occurrence: None)
  Receive Date: 20060602
  Receipt Date: 20060523
  Transmission Date: 20061013
  Serious: Yes (Hospitalization)
  Sender: FDA-Public Use
  Company Number: DE-JNJFOC-20060301145

PATIENT
  Age: 59 Year
  Sex: Male

DRUGS (8)
  1. REMICADE [Suspect]
     Route: 042
  2. LANTUS [Concomitant]
     Indication: DIABETES MELLITUS
     Route: 058
  3. AMARYL [Concomitant]
     Indication: DIABETES MELLITUS
  4. DIALTREND [Concomitant]
  5. NORVASC [Concomitant]
  6. ACETYLSALICYLIC ACID SRT [Concomitant]
     Indication: ANTICOAGULANT THERAPY
  7. ARELIX [Concomitant]
  8. FUCIDINE CAP [Concomitant]

REACTIONS (1)
  - DERMATITIS ATOPIC [None]
